FAERS Safety Report 7096244-3 (Version None)
Quarter: 2010Q4

REPORT INFORMATION
  Report Type: 
  Country: None (occurrence: None)
  Receive Date: 20101109
  Receipt Date: 20101109
  Transmission Date: 20110411
  Serious: Yes (Other)
  Sender: FDA-Public Use
  Company Number: None

PATIENT
  Age: 69 Year
  Sex: Female

DRUGS (1)
  1. VORICONAZOLE (VFEND IV) [Suspect]
     Indication: LUNG DISORDER
     Dosage: 200MG BID
     Dates: start: 20090601, end: 20100201

REACTIONS (3)
  - BLOOD ALKALINE PHOSPHATASE INCREASED [None]
  - BONE PAIN [None]
  - OEDEMA PERIPHERAL [None]
